FAERS Safety Report 10072096 (Version 1)
Quarter: 2014Q2

REPORT INFORMATION
  Report Type: Spontaneous
  Country: US (occurrence: None)
  Receive Date: 20140410
  Receipt Date: 20140410
  Transmission Date: 20141212
  Serious: Yes (Other)
  Sender: FDA-Public Use
  Company Number: None

PATIENT
  Age: 79 Year
  Sex: Male
  Weight: 87.09 kg

DRUGS (1)
  1. PLAVIX [Suspect]
     Indication: ANTICOAGULANT THERAPY
     Dosage: 3 MONTHS ONE TAB PER DAY
     Route: 048

REACTIONS (7)
  - Dizziness [None]
  - Headache [None]
  - Balance disorder [None]
  - Hot flush [None]
  - Nausea [None]
  - Dysphonia [None]
  - Product substitution issue [None]
